FAERS Safety Report 9834308 (Version 2)
Quarter: 2014Q1

REPORT INFORMATION
  Report Type: Report from Study
  Country: AU (occurrence: AU)
  Receive Date: 20140122
  Receipt Date: 20140211
  Transmission Date: 20141002
  Serious: Yes (Hospitalization)
  Sender: FDA-Public Use
  Company Number: AU-US-EMD SERONO, INC.-7263388

PATIENT
  Sex: Female

DRUGS (1)
  1. SAIZEN [Suspect]
     Indication: PRODUCT USED FOR UNKNOWN INDICATION

REACTIONS (2)
  - Tachycardia [Unknown]
  - Treatment noncompliance [Unknown]
